FAERS Safety Report 8739125 (Version 2)
Quarter: 2013Q4

REPORT INFORMATION
  Report Type: Spontaneous
  Country: GB (occurrence: GB)
  Receive Date: 20120823
  Receipt Date: 20131031
  Transmission Date: 20140711
  Serious: Yes (Disabling)
  Sender: FDA-Public Use
  Company Number: GB-009507513-1208GBR007732

PATIENT
  Age: 22 Year
  Sex: Male
  Weight: 69.85 kg

DRUGS (2)
  1. PROPECIA 1MG FILM-COATED TABLET [Suspect]
     Indication: ALOPECIA
     Dosage: UNK
     Route: 048
     Dates: start: 20120515, end: 20120615
  2. RANITIDINE [Concomitant]

REACTIONS (1)
  - Testicular atrophy [Unknown]
